FAERS Safety Report 7638668-9 (Version None)
Quarter: 2011Q3

REPORT INFORMATION
  Report Type: 
  Country: None (occurrence: None)
  Receive Date: 20110727
  Receipt Date: 20110721
  Transmission Date: 20111222
  Serious: Yes (Other)
  Sender: FDA-Public Use
  Company Number: US-PFIZER INC-2011166546

PATIENT
  Sex: Female
  Weight: 63.492 kg

DRUGS (1)
  1. DILANTIN-125 [Suspect]
     Indication: CONVULSION
     Dosage: 100 MG, 2X/DAY
     Dates: start: 19560101, end: 19700101

REACTIONS (3)
  - NASOPHARYNGITIS [None]
  - MALAISE [None]
  - CONVULSION [None]
